FAERS Safety Report 10558358 (Version 2)
Quarter: 2015Q3

REPORT INFORMATION
  Report Type: Spontaneous
  Country: US (occurrence: US)
  Receive Date: 20141031
  Receipt Date: 20150818
  Transmission Date: 20151125
  Serious: No
  Sender: FDA-Public Use
  Company Number: US-GILEAD-2014-0120834

PATIENT
  Age: 46 Year
  Sex: Female

DRUGS (3)
  1. REMODULIN [Concomitant]
     Active Substance: TREPROSTINIL
  2. REVATIO [Concomitant]
     Active Substance: SILDENAFIL CITRATE
  3. LETAIRIS [Suspect]
     Active Substance: AMBRISENTAN
     Indication: PRODUCT USED FOR UNKNOWN INDICATION
     Dosage: 5 MG, QD
     Dates: start: 20110208

REACTIONS (14)
  - Oedema peripheral [Unknown]
  - Dizziness [Unknown]
  - Vasodilatation [Unknown]
  - Anaemia [Unknown]
  - Tremor [Unknown]
  - Muscle spasms [Unknown]
  - Bladder dysfunction [Unknown]
  - Amnesia [Unknown]
  - Vein disorder [Unknown]
  - Tinnitus [Unknown]
  - Restless legs syndrome [Unknown]
  - Visual impairment [Unknown]
  - Fatigue [Unknown]
  - Asthenia [Unknown]
